FAERS Safety Report 20775926 (Version 5)
Quarter: 2023Q2

REPORT INFORMATION
  Report Type: Report from Study
  Country: AT (occurrence: AT)
  Receive Date: 20220502
  Receipt Date: 20230503
  Transmission Date: 20230722
  Serious: Yes (Hospitalization, Other)
  Sender: FDA-Public Use
  Company Number: AT-PFM-2022-02753

PATIENT
  Age: 75 Year
  Sex: Female
  Weight: 68 kg

DRUGS (26)
  1. BRAFTOVI [Suspect]
     Active Substance: ENCORAFENIB
     Indication: Colorectal cancer
     Dosage: 300 MG, QD (1/DAY)
     Route: 048
     Dates: start: 20220219
  2. BRAFTOVI [Suspect]
     Active Substance: ENCORAFENIB
     Dosage: 300 MG, QD (1/DAY)
     Route: 048
     Dates: start: 20220413, end: 20220719
  3. CETUXIMAB [Suspect]
     Active Substance: CETUXIMAB
     Indication: Colorectal cancer
     Dosage: 400 MG/M2, UNK
     Route: 042
     Dates: start: 20220216
  4. CETUXIMAB [Suspect]
     Active Substance: CETUXIMAB
     Dosage: 250 MG/M2, UNK
     Route: 042
     Dates: start: 20220411, end: 20220711
  5. AMLODIPINE [Concomitant]
     Active Substance: AMLODIPINE BESYLATE
     Indication: Hypertension
     Dosage: 10 MG,DAILY
     Route: 048
  6. EUTHYROX [Concomitant]
     Active Substance: LEVOTHYROXINE SODIUM
     Indication: Hypothyroidism
     Dosage: 88 UG, DAILY
     Route: 048
  7. JARDIANCE [Concomitant]
     Active Substance: EMPAGLIFLOZIN
     Indication: Type 2 diabetes mellitus
     Dosage: 10 MG, DAILY
     Route: 048
  8. JENTADUETO [Concomitant]
     Active Substance: LINAGLIPTIN\METFORMIN HYDROCHLORIDE
     Indication: Type 2 diabetes mellitus
     Dosage: 2.5 MG, BID (2/DAY)
     Route: 048
  9. PANTOPRAZOLE [Concomitant]
     Active Substance: PANTOPRAZOLE
     Indication: Prophylaxis
     Dosage: 20 MG, DAILY
     Route: 048
  10. PLAVIX [Concomitant]
     Active Substance: CLOPIDOGREL BISULFATE
     Indication: Prophylaxis
     Dosage: 75 MG, DAILY
     Route: 048
  11. SPIRONOLACTONE [Concomitant]
     Active Substance: SPIRONOLACTONE
     Indication: Prophylaxis
     Dosage: 50 MG, DAILY
     Route: 048
  12. SALOFALK [Concomitant]
     Indication: Colitis ulcerative
     Dosage: 500 MG, DAILY
     Route: 048
  13. LOPERAMIDE HYDROCHLORIDE [Concomitant]
     Active Substance: LOPERAMIDE HYDROCHLORIDE
     Indication: Diarrhoea
     Dosage: 2 MG, PRN (AS NEEDED)
     Route: 048
  14. FENTANYL [Concomitant]
     Active Substance: FENTANYL
     Indication: Cancer pain
     Dosage: 75 MG, PRN (AS NEEDED)
     Route: 062
     Dates: end: 20220225
  15. FENTANYL [Concomitant]
     Active Substance: FENTANYL
     Dosage: 100 MG, PRN (AS NEEDED)
     Route: 062
     Dates: start: 20220226
  16. FENTANYL CITRATE [Concomitant]
     Active Substance: FENTANYL CITRATE
     Indication: Cancer pain
     Dosage: 100 MG, PRN (AS NEEDED)
     Route: 048
     Dates: end: 20220224
  17. FENTANYL CITRATE [Concomitant]
     Active Substance: FENTANYL CITRATE
     Dosage: 200 MG, PRN (AS NEEDED)
     Route: 048
     Dates: start: 20220225
  18. PASPERTIN [Concomitant]
     Indication: Prophylaxis
     Dosage: 10 MG, PRN (AS NEEDED)
     Route: 048
     Dates: start: 20220216
  19. ACETAMINOPHEN [Concomitant]
     Active Substance: ACETAMINOPHEN
     Indication: Prophylaxis
     Dosage: 500 MG, PRN (AS NEEDED)
     Route: 048
     Dates: start: 20220216, end: 20220223
  20. POLYETHYLENE GLYCOL 3350\POTASSIUM CHLORIDE\SODIUM BICARBONATE\SODIUM [Concomitant]
     Active Substance: POLYETHYLENE GLYCOL 3350\POTASSIUM CHLORIDE\SODIUM BICARBONATE\SODIUM CHLORIDE
     Indication: Prophylaxis
     Dosage: 1 UNK, PRN (AS NEEDED)
     Route: 048
     Dates: start: 20220216
  21. ZOFRAN [Concomitant]
     Active Substance: ONDANSETRON HYDROCHLORIDE
     Indication: Prophylaxis
     Dosage: 8 MG, PRN (AS NEEDED)
     Route: 048
     Dates: start: 20220216, end: 20220227
  22. FRAGMIN [Concomitant]
     Active Substance: DALTEPARIN SODIUM
     Indication: Prophylaxis
     Dosage: 5000 IU, DAILY
     Route: 058
     Dates: start: 20220216, end: 20220301
  23. ERYTHROMYCIN [Concomitant]
     Active Substance: ERYTHROMYCIN
     Indication: Prophylaxis
     Dosage: UNK, MG PRN (AS NEEDED)
     Route: 061
     Dates: start: 20220216
  24. COSMETICS [Concomitant]
     Active Substance: COSMETICS
     Indication: Prophylaxis
     Dosage: UNK, MG PRN (AS NEEDED)
     Route: 061
     Dates: start: 20220216
  25. MAGNESIUM [Concomitant]
     Active Substance: MAGNESIUM
     Indication: Prophylaxis
     Dosage: UNK, THREE TIMES A DAY
     Route: 048
     Dates: start: 20220217, end: 20220301
  26. KALIORAL [Concomitant]
     Indication: Prophylaxis
     Dosage: UNK, UNKNOWN TWICE DAILY
     Route: 048
     Dates: start: 20220228, end: 20220301

REACTIONS (8)
  - Nausea [Recovered/Resolved]
  - Vomiting [Recovered/Resolved]
  - Abdominal pain upper [Recovered/Resolved]
  - Enteritis [Recovered/Resolved]
  - Cholecystitis [Unknown]
  - Hepatitis [Unknown]
  - C-reactive protein increased [Unknown]
  - Diarrhoea [Unknown]

NARRATIVE: CASE EVENT DATE: 20220220
